FAERS Safety Report 6730926-5 (Version None)
Quarter: 2010Q2

REPORT INFORMATION
  Report Type: 
  Country: None (occurrence: None)
  Receive Date: 20100518
  Receipt Date: 20100514
  Transmission Date: 20101027
  Serious: Yes (Life-Threatening)
  Sender: FDA-Public Use
  Company Number: PHHO2010IT06803

PATIENT
  Sex: Male
  Weight: 95 kg

DRUGS (1)
  1. CGP 57148B T35717+ [Suspect]
     Dosage: 600MG DAILY
     Route: 048
     Dates: start: 20100327, end: 20100504

REACTIONS (12)
  - ACIDOSIS [None]
  - ACUTE RESPIRATORY DISTRESS SYNDROME [None]
  - BRONCHOPNEUMONIA [None]
  - CANDIDIASIS [None]
  - CARDIO-RESPIRATORY ARREST [None]
  - FACE OEDEMA [None]
  - HYPERCAPNIA [None]
  - LOCALISED OEDEMA [None]
  - LOSS OF CONSCIOUSNESS [None]
  - LUNG CONSOLIDATION [None]
  - OEDEMA PERIPHERAL [None]
  - PLEURAL EFFUSION [None]
